FAERS Safety Report 7902916-8 (Version None)
Quarter: 2011Q4

REPORT INFORMATION
  Report Type: 
  Country: None (occurrence: None)
  Receive Date: 20111109
  Receipt Date: 20111011
  Transmission Date: 20120403
  Serious: Yes (Hospitalization)
  Sender: FDA-Public Use
  Company Number: CA-JNJFOC-20111102132

PATIENT
  Sex: Male
  Weight: 65 kg

DRUGS (6)
  1. SIMVASTATIN [Concomitant]
     Route: 065
  2. TRIAMCINOLONE ACETONIDE [Concomitant]
     Route: 065
  3. PLAVIX [Concomitant]
     Route: 065
  4. AZATHIOPRINE [Concomitant]
     Route: 048
  5. REMICADE [Suspect]
     Indication: CROHN'S DISEASE
     Route: 042
     Dates: start: 20110505
  6. MESALAMINE [Concomitant]
     Route: 065

REACTIONS (1)
  - INGUINAL HERNIA REPAIR [None]
